FAERS Safety Report 7122080-5 (Version None)
Quarter: 2010Q4

REPORT INFORMATION
  Report Type: 
  Country: None (occurrence: None)
  Receive Date: 20101124
  Receipt Date: 20101116
  Transmission Date: 20110411
  Serious: Yes (Other)
  Sender: FDA-Public Use
  Company Number: JP-B.I. PHARMACEUTICALS,INC./RIDGEFIELD-2010-BP-11583NB

PATIENT
  Sex: Female

DRUGS (16)
  1. MICOMBI COMBINATION [Suspect]
     Indication: HYPERTENSION
     Dosage: 80MG/12.5MG
     Route: 048
     Dates: start: 20090901, end: 20100924
  2. LIPITOR [Concomitant]
     Dosage: 10 MG
     Route: 048
     Dates: start: 20021201
  3. MYSLEE [Concomitant]
     Dosage: 5 MG
     Route: 048
     Dates: start: 20090901
  4. AZELASTINE HCL [Concomitant]
     Dosage: 16 MG
     Route: 048
     Dates: start: 20091201
  5. NORVASC [Concomitant]
     Dosage: 5 MG
     Route: 048
     Dates: start: 20021201
  6. ASPARA-CA [Concomitant]
     Dosage: 600 MG
     Dates: start: 20021201
  7. PROCYLIN [Concomitant]
     Dosage: 60 MG
     Dates: start: 20021201
  8. LOXONIN [Concomitant]
     Dosage: 180 MG
     Dates: start: 20021201
  9. MUCOSTA [Concomitant]
     Dosage: 300 MG
     Dates: start: 20021201
  10. MYONAL [Concomitant]
     Dosage: 150 MG
     Dates: start: 20090401
  11. ALFAROL [Concomitant]
     Dosage: 1DF
     Dates: start: 20021201
  12. VOLTAREN [Concomitant]
     Dates: start: 20100101
  13. ADALAT CC [Concomitant]
     Dosage: 20 MG
     Dates: start: 20090801
  14. VOLTAREN: TAPE 30 MG [Concomitant]
     Dates: start: 20090901, end: 20091001
  15. NAUZELIN [Concomitant]
     Dosage: 3DF
     Dates: start: 20090901, end: 20091001
  16. BIOFERMIN [Concomitant]
     Dosage: 3 G
     Dates: start: 20090901, end: 20091001

REACTIONS (3)
  - EYE INJURY [None]
  - FALL [None]
  - HYPONATRAEMIA [None]
